FAERS Safety Report 5971275-2 (Version None)
Quarter: 2008Q4

REPORT INFORMATION
  Report Type: 
  Country: None (occurrence: None)
  Receive Date: 20081128
  Receipt Date: 20081119
  Transmission Date: 20090506
  Serious: Yes (Death)
  Sender: FDA-Public Use
  Company Number: JP-PFIZER INC-2008091820

PATIENT
  Sex: Female
  Weight: 47 kg

DRUGS (11)
  1. SU-011,248 [Suspect]
     Indication: COLORECTAL CANCER
     Route: 048
     Dates: start: 20081015, end: 20081029
  2. IRINOTECAN HYDROCHLORIDE [Suspect]
     Indication: COLORECTAL CANCER
     Route: 042
     Dates: start: 20081015, end: 20081015
  3. LEUCOVORIN CALCIUM [Suspect]
     Indication: COLORECTAL CANCER
     Route: 042
     Dates: start: 20081015, end: 20081015
  4. FLUOROURACIL [Suspect]
     Indication: COLORECTAL CANCER
     Route: 042
     Dates: start: 20081015, end: 20081015
  5. FLUOROURACIL [Suspect]
     Route: 042
     Dates: start: 20081015, end: 20081017
  6. MAGNESIUM OXIDE [Concomitant]
  7. DEXAMETHASONE [Concomitant]
     Route: 048
     Dates: start: 20081016, end: 20081019
  8. ZOPICLONE [Concomitant]
  9. RAMOSETRON HYDROCHLORIDE [Concomitant]
     Route: 048
     Dates: start: 20081015, end: 20081017
  10. LEVOFLOXACIN [Concomitant]
     Route: 048
     Dates: start: 20081029, end: 20081029
  11. KN 1A [Concomitant]
     Route: 042
     Dates: start: 20081029, end: 20081029

REACTIONS (1)
  - MYOCARDIAL INFARCTION [None]
